FAERS Safety Report 23747362 (Version 1)
Quarter: 2024Q2

REPORT INFORMATION
  Report Type: Spontaneous
  Country: CN (occurrence: CN)
  Receive Date: 20240416
  Receipt Date: 20240416
  Transmission Date: 20240716
  Serious: Yes (Hospitalization)
  Sender: FDA-Public Use
  Company Number: CN-GTI-000236

PATIENT
  Age: 16 Year
  Sex: Male

DRUGS (26)
  1. PREDNISONE [Suspect]
     Active Substance: PREDNISONE
     Indication: B-cell type acute leukaemia
     Route: 065
  2. PREDNISONE [Suspect]
     Active Substance: PREDNISONE
     Indication: Central nervous system leukaemia
     Route: 065
  3. VINCRISTINE [Suspect]
     Active Substance: VINCRISTINE
     Indication: B-cell type acute leukaemia
     Route: 065
  4. VINCRISTINE [Suspect]
     Active Substance: VINCRISTINE
     Indication: Central nervous system leukaemia
     Route: 065
  5. DAUNORUBICIN [Suspect]
     Active Substance: DAUNORUBICIN
     Indication: B-cell type acute leukaemia
     Route: 065
  6. DAUNORUBICIN [Suspect]
     Active Substance: DAUNORUBICIN
     Indication: Central nervous system leukaemia
     Route: 065
  7. ASPARAGINASE [Suspect]
     Active Substance: ASPARAGINASE
     Indication: B-cell type acute leukaemia
     Route: 065
  8. ASPARAGINASE [Suspect]
     Active Substance: ASPARAGINASE
     Indication: Central nervous system leukaemia
     Route: 065
  9. DEXAMETHASONE [Suspect]
     Active Substance: DEXAMETHASONE
     Indication: B-cell type acute leukaemia
     Route: 065
  10. DEXAMETHASONE [Suspect]
     Active Substance: DEXAMETHASONE
     Indication: Central nervous system leukaemia
     Route: 065
  11. CYTARABINE [Suspect]
     Active Substance: CYTARABINE
     Indication: B-cell type acute leukaemia
     Route: 065
  12. CYTARABINE [Suspect]
     Active Substance: CYTARABINE
     Indication: Central nervous system leukaemia
     Route: 065
  13. METHOTREXATE [Suspect]
     Active Substance: METHOTREXATE
     Indication: B-cell type acute leukaemia
     Dosage: 1 GRAM PER METER SQUARE
     Route: 042
  14. METHOTREXATE [Suspect]
     Active Substance: METHOTREXATE
     Indication: Central nervous system leukaemia
     Dosage: 1 GRAM PER METER SQUARE
     Route: 042
  15. CYCLOPHOSPHAMIDE [Suspect]
     Active Substance: CYCLOPHOSPHAMIDE
     Indication: B-cell type acute leukaemia
     Route: 065
  16. CYCLOPHOSPHAMIDE [Suspect]
     Active Substance: CYCLOPHOSPHAMIDE
     Indication: Central nervous system leukaemia
     Route: 065
  17. IDARUBICIN [Suspect]
     Active Substance: IDARUBICIN
     Indication: B-cell type acute leukaemia
     Route: 065
  18. IDARUBICIN [Suspect]
     Active Substance: IDARUBICIN
     Indication: Central nervous system leukaemia
     Route: 065
  19. CYTARABINE [Suspect]
     Active Substance: CYTARABINE
     Indication: B-cell type acute leukaemia
     Dosage: 3 GRAM PER METER SQUARE
     Route: 042
  20. CYTARABINE [Suspect]
     Active Substance: CYTARABINE
     Indication: Central nervous system leukaemia
     Dosage: 3 GRAM PER METER SQUARE
     Route: 042
  21. MITOXANTRONE [Suspect]
     Active Substance: MITOXANTRONE HYDROCHLORIDE
     Indication: B-cell type acute leukaemia
     Route: 065
  22. MITOXANTRONE [Suspect]
     Active Substance: MITOXANTRONE HYDROCHLORIDE
     Indication: Central nervous system leukaemia
     Route: 065
  23. CLADRIBINE [Suspect]
     Active Substance: CLADRIBINE
     Indication: B-cell type acute leukaemia
     Route: 065
  24. CLADRIBINE [Suspect]
     Active Substance: CLADRIBINE
     Indication: Central nervous system leukaemia
     Route: 065
  25. VENETOCLAX [Suspect]
     Active Substance: VENETOCLAX
     Indication: B-cell type acute leukaemia
     Route: 065
  26. VENETOCLAX [Suspect]
     Active Substance: VENETOCLAX
     Indication: Central nervous system leukaemia
     Route: 065

REACTIONS (7)
  - Dysarthria [Recovered/Resolved]
  - B-cell type acute leukaemia [Recovered/Resolved]
  - Disease recurrence [Recovered/Resolved]
  - Central nervous system leukaemia [Recovered/Resolved]
  - Facial paralysis [Recovered/Resolved]
  - Condition aggravated [Recovered/Resolved]
  - Treatment failure [Recovered/Resolved]
